FAERS Safety Report 5263099-9 (Version None)
Quarter: 2007Q1

REPORT INFORMATION
  Report Type: 
  Country: None (occurrence: None)
  Receive Date: 20070312
  Receipt Date: 20070228
  Transmission Date: 20070707
  Serious: Yes (Hospitalization)
  Sender: FDA-Public Use
  Company Number: JP-PFIZER INC-2007010235

PATIENT
  Sex: Female
  Weight: 45 kg

DRUGS (5)
  1. AZULFIDINE EN-TABS [Suspect]
     Indication: RHEUMATOID ARTHRITIS
     Dates: start: 20050511, end: 20050524
  2. METHOTREXATE [Suspect]
     Indication: RHEUMATOID ARTHRITIS
     Dosage: DAILY DOSE:4MG
     Route: 048
     Dates: start: 20050701
  3. BUCILLAMINE [Suspect]
     Dosage: DAILY DOSE:100MG
  4. LOXONIN [Concomitant]
     Route: 048
  5. MUCOSTA [Concomitant]
     Route: 048

REACTIONS (5)
  - ARTHRALGIA [None]
  - JOINT SWELLING [None]
  - LIVER FUNCTION TEST ABNORMAL [None]
  - PYREXIA [None]
  - WHITE BLOOD CELL COUNT DECREASED [None]
